FAERS Safety Report 20483952 (Version 1)
Quarter: 2022Q1

REPORT INFORMATION
  Report Type: Spontaneous
  Country: US (occurrence: None)
  Receive Date: 20220216
  Receipt Date: 20220216
  Transmission Date: 20220423
  Serious: Yes (Disabling)
  Sender: FDA-Public Use
  Company Number: None

PATIENT
  Age: 62 Year
  Sex: Female
  Weight: 63 kg

DRUGS (2)
  1. OMEPRAZOLE [Suspect]
     Active Substance: OMEPRAZOLE
     Indication: Dyspepsia
     Dosage: OTHER QUANTITY : 1 CAPSULE(S);?
     Route: 048
     Dates: start: 20211231, end: 20220110
  2. METOPROLOL [Concomitant]
     Active Substance: METOPROLOL

REACTIONS (9)
  - Decreased appetite [None]
  - Feeling abnormal [None]
  - Nausea [None]
  - Withdrawal syndrome [None]
  - Hot flush [None]
  - Diarrhoea [None]
  - Weight decreased [None]
  - Asthenia [None]
  - Palpitations [None]

NARRATIVE: CASE EVENT DATE: 20220101
